FAERS Safety Report 18668449 (Version 1)
Quarter: 2020Q4

REPORT INFORMATION
  Report Type: Spontaneous
  Country: GB (occurrence: VN)
  Receive Date: 20201228
  Receipt Date: 20201228
  Transmission Date: 20210114
  Serious: Yes (Other)
  Sender: FDA-Public Use
  Company Number: VN-ASTELLAS-2020US045550

PATIENT
  Age: 62 Year
  Sex: Female

DRUGS (3)
  1. TARCEVA [Suspect]
     Active Substance: ERLOTINIB HYDROCHLORIDE
     Indication: LUNG NEOPLASM
     Route: 048
  2. OSIMERTINIB. [Suspect]
     Active Substance: OSIMERTINIB
     Indication: LUNG NEOPLASM
     Route: 065
  3. ZOLEDRONIC ACID [Suspect]
     Active Substance: ZOLEDRONIC ACID
     Indication: LUNG NEOPLASM
     Dosage: UNK, UNKNOWN FREQ. (3 MONTHS)
     Route: 065

REACTIONS (2)
  - Malignant neoplasm progression [Unknown]
  - Dyspnoea exertional [Not Recovered/Not Resolved]
